FAERS Safety Report 7304290-7 (Version None)
Quarter: 2011Q1

REPORT INFORMATION
  Report Type: 
  Country: None (occurrence: None)
  Receive Date: 20110221
  Receipt Date: 20101230
  Transmission Date: 20110831
  Serious: Yes (Hospitalization, Other)
  Sender: FDA-Public Use
  Company Number: US-BAYER-201033500NA

PATIENT
  Sex: Female
  Weight: 62.132 kg

DRUGS (2)
  1. YASMIN [Suspect]
     Indication: PRODUCT USED FOR UNKNOWN INDICATION
     Dates: start: 20070501, end: 20070615
  2. YAZ [Suspect]
     Dosage: UNK UNK, QD
     Route: 048
     Dates: start: 20070131, end: 20070615

REACTIONS (2)
  - PULMONARY EMBOLISM [None]
  - CHEST PAIN [None]
